FAERS Safety Report 25181444 (Version 3)
Quarter: 2025Q2

REPORT INFORMATION
  Report Type: Report from Study
  Country: US (occurrence: US)
  Receive Date: 20250410
  Receipt Date: 20250613
  Transmission Date: 20250717
  Serious: Yes (Other)
  Sender: ALEXION PHARMACEUTICALS
  Company Number: US-AstraZeneca-CH-00844091A

PATIENT

DRUGS (2)
  1. ULTOMIRIS [Suspect]
     Active Substance: RAVULIZUMAB-CWVZ
     Indication: Myasthenia gravis
     Route: 065
  2. OZEMPIC [Suspect]
     Active Substance: SEMAGLUTIDE
     Indication: Diabetes mellitus
     Route: 065

REACTIONS (14)
  - Diabetes mellitus [Unknown]
  - Cataract [Unknown]
  - Diarrhoea [Recovering/Resolving]
  - Pancreatic enzymes increased [Unknown]
  - Muscle spasms [Unknown]
  - Muscular weakness [Unknown]
  - Trismus [Unknown]
  - Anxiety [Unknown]
  - Glomerular filtration rate decreased [Unknown]
  - Blood pressure decreased [Recovered/Resolved]
  - Weight decreased [Unknown]
  - Lymphocyte count abnormal [Not Recovered/Not Resolved]
  - Limb discomfort [Unknown]
  - Back pain [Unknown]
